FAERS Safety Report 5627701-1 (Version None)
Quarter: 2008Q1

REPORT INFORMATION
  Report Type: 
  Country: None (occurrence: None)
  Receive Date: 20080214
  Receipt Date: 20080214
  Transmission Date: 20080703
  Serious: No
  Sender: FDA-Public Use
  Company Number: None

PATIENT
  Age: 67 Year
  Sex: Male
  Weight: 86.1834 kg

DRUGS (1)
  1. BUDEPRION XL TAB 300 MG TEVA PHARMAC [Suspect]
     Indication: DEPRESSION
     Dosage: 300 MG EVERY MORNING PO
     Route: 048
     Dates: start: 20070612, end: 20071130

REACTIONS (2)
  - FAECAL INCONTINENCE [None]
  - THERAPEUTIC RESPONSE UNEXPECTED WITH DRUG SUBSTITUTION [None]
